FAERS Safety Report 4865047-X (Version None)
Quarter: 2005Q4

REPORT INFORMATION
  Report Type: 
  Country: None (occurrence: None)
  Receive Date: 20051223
  Receipt Date: 20051028
  Transmission Date: 20060501
  Serious: Yes (Hospitalization, Other)
  Sender: FDA-Public Use
  Company Number: FR-BRISTOL-MYERS SQUIBB COMPANY-13161013

PATIENT
  Age: 72 Year
  Sex: Female
  Weight: 53 kg

DRUGS (8)
  1. ELISOR TABS [Suspect]
     Indication: HYPERCHOLESTEROLAEMIA
     Route: 048
     Dates: start: 20050614, end: 20051020
  2. PLAVIX [Concomitant]
     Indication: CAROTID ENDARTERECTOMY
     Route: 048
     Dates: start: 20050614
  3. CELECTOL [Concomitant]
  4. FORTZAAR [Concomitant]
  5. CORTANCYL [Concomitant]
  6. FLUDEX [Concomitant]
  7. ACETAMINOPHEN [Concomitant]
  8. COZAAR [Concomitant]

REACTIONS (7)
  - ALOPECIA [None]
  - EYE PAIN [None]
  - HEADACHE [None]
  - PAPILLOEDEMA [None]
  - PRURITUS [None]
  - URTICARIA [None]
  - VISUAL DISTURBANCE [None]
